FAERS Safety Report 7152478-0 (Version None)
Quarter: 2010Q4

REPORT INFORMATION
  Report Type: 
  Country: None (occurrence: None)
  Receive Date: 20101213
  Receipt Date: 20101209
  Transmission Date: 20110411
  Serious: No
  Sender: FDA-Public Use
  Company Number: US-PFIZER INC-2010168616

PATIENT

DRUGS (1)
  1. RAPAMUNE [Suspect]
     Dosage: UNK
     Route: 048

REACTIONS (1)
  - OEDEMA [None]
